FAERS Safety Report 7604052-7 (Version None)
Quarter: 2011Q3

REPORT INFORMATION
  Report Type: 
  Country: None (occurrence: None)
  Receive Date: 20110711
  Receipt Date: 20110711
  Transmission Date: 20111222
  Serious: Yes (Life-Threatening, Hospitalization, Disabling, Other)
  Sender: FDA-Public Use
  Company Number: None

PATIENT
  Age: 23 Year
  Sex: Male
  Weight: 113.3993 kg

DRUGS (2)
  1. PHENTERMINE HYDROCHLORIDE [Suspect]
     Indication: APPETITE DISORDER
     Dosage: ONE TAB BEFORE BREAKFAST/LUNCH TWICE A DAY PO
     Route: 048
  2. ACAI [Suspect]
     Indication: MEDICAL DIET
     Dosage: 4 CAPS ONCE DAILY PO
     Route: 048

REACTIONS (9)
  - MULTI-ORGAN FAILURE [None]
  - ACUTE RESPIRATORY DISTRESS SYNDROME [None]
  - NAUSEA [None]
  - SHOCK [None]
  - VOMITING [None]
  - ABDOMINAL PAIN [None]
  - RENAL FAILURE ACUTE [None]
  - ACUTE HEPATIC FAILURE [None]
  - PYREXIA [None]
